FAERS Safety Report 6545335-1 (Version None)
Quarter: 2010Q1

REPORT INFORMATION
  Report Type: 
  Country: None (occurrence: None)
  Receive Date: 20100121
  Receipt Date: 20100111
  Transmission Date: 20100710
  Serious: Yes (Disabling)
  Sender: FDA-Public Use
  Company Number: JP-MERCK-0404USA02572

PATIENT
  Age: 25 Year
  Sex: Male

DRUGS (18)
  1. PEPCID [Suspect]
     Indication: PROPHYLAXIS
     Route: 048
     Dates: start: 20030517, end: 20030605
  2. VOLTAREN [Suspect]
     Indication: PAIN
     Route: 054
     Dates: start: 20030515, end: 20030602
  3. FARMORUBICIN [Suspect]
     Indication: HEPATIC NEOPLASM MALIGNANT
     Route: 065
     Dates: start: 20030514, end: 20030514
  4. GELATIN [Suspect]
     Indication: HEPATIC NEOPLASM MALIGNANT
     Route: 065
     Dates: start: 20030514
  5. LEPETAN [Suspect]
     Indication: PAIN
     Route: 054
     Dates: start: 20030518, end: 20030603
  6. STRONGER NEO-MINOPHAGEN C [Suspect]
     Indication: PROPHYLAXIS
     Route: 042
     Dates: start: 20030516, end: 20030605
  7. GLUTATHIONE [Suspect]
     Indication: PROPHYLAXIS
     Route: 042
     Dates: start: 20030516, end: 20030605
  8. PANSPORIN [Suspect]
     Indication: PYREXIA
     Route: 042
     Dates: start: 20030519, end: 20030530
  9. PANSPORIN [Suspect]
     Indication: INFECTION
     Route: 042
     Dates: start: 20030519, end: 20030530
  10. LENDORMIN [Concomitant]
     Indication: INSOMNIA
     Route: 048
     Dates: start: 20030518, end: 20030604
  11. LIPIODOL [Suspect]
     Indication: HEPATIC NEOPLASM MALIGNANT
     Route: 065
     Dates: start: 20030514
  12. BOSMIN [Concomitant]
     Route: 065
     Dates: start: 20030514, end: 20030514
  13. OMNIPAQUE 140 [Concomitant]
     Indication: COMPUTERISED TOMOGRAM
     Route: 065
     Dates: start: 20030515, end: 20030515
  14. OMNIPAQUE 140 [Concomitant]
     Route: 065
     Dates: start: 20030524, end: 20030524
  15. IOPAMIDOL [Concomitant]
     Indication: VASCULAR IMAGING
     Route: 065
     Dates: start: 20030515, end: 20030515
  16. MAGNEVIST [Concomitant]
     Indication: NUCLEAR MAGNETIC RESONANCE IMAGING
     Route: 065
     Dates: start: 20030515, end: 20030515
  17. MAGNEVIST [Concomitant]
     Route: 065
     Dates: start: 20030519, end: 20030519
  18. DEPAS [Suspect]
     Route: 065

REACTIONS (1)
  - RHABDOMYOLYSIS [None]
